FAERS Safety Report 26073243 (Version 5)
Quarter: 2025Q4

REPORT INFORMATION
  Report Type: Spontaneous
  Country: EU (occurrence: EU)
  Receive Date: 20251121
  Receipt Date: 20251230
  Transmission Date: 20260118
  Serious: Yes (Death, Hospitalization, Other)
  Sender: SANDOZ
  Company Number: EU-002147023-NVSC2025FR178840

PATIENT
  Age: 55 Year
  Sex: Male
  Weight: 80 kg

DRUGS (7)
  1. NEORAL [Suspect]
     Active Substance: CYCLOSPORINE
     Indication: Immunosuppressant drug therapy
     Dosage: 50 MG, BID
     Dates: start: 20131212, end: 20190101
  2. NEORAL [Suspect]
     Active Substance: CYCLOSPORINE
     Indication: Renal transplant
  3. MYFORTIC [Suspect]
     Active Substance: MYCOPHENOLATE SODIUM
     Indication: Immunosuppressant drug therapy
     Dosage: 720 MG, BID (TWICE PER DAY)
     Dates: start: 20101026, end: 20120626
  4. MYFORTIC [Suspect]
     Active Substance: MYCOPHENOLATE SODIUM
     Indication: Renal transplant
  5. PROGRAF [Concomitant]
     Active Substance: TACROLIMUS
     Indication: Immunosuppressant drug therapy
     Dosage: 2.5 MG, BID
     Dates: start: 20101026, end: 20120202
  6. RAPAMUNE [Concomitant]
     Active Substance: SIROLIMUS
     Indication: Product used for unknown indication
     Dosage: 1 MG, QD
     Dates: start: 20120626, end: 20131212
  7. PREDNISONE [Concomitant]
     Active Substance: PREDNISONE
     Indication: Immunosuppressant drug therapy
     Dosage: 10 MG, QD
     Dates: start: 20101026, end: 20210606

REACTIONS (9)
  - Kaposi^s sarcoma [Fatal]
  - Osteitis [Fatal]
  - Necrosis [Fatal]
  - Infection [Fatal]
  - General physical health deterioration [Fatal]
  - Immunodeficiency [Fatal]
  - Disease recurrence [Unknown]
  - Iatrogenic Kaposi sarcoma [Unknown]
  - Kidney transplant rejection [Unknown]

NARRATIVE: CASE EVENT DATE: 20111001
